FAERS Safety Report 6986433-8 (Version None)
Quarter: 2010Q3

REPORT INFORMATION
  Report Type: 
  Country: None (occurrence: None)
  Receive Date: 20100915
  Receipt Date: 20090818
  Transmission Date: 20110219
  Serious: Yes (Other)
  Sender: FDA-Public Use
  Company Number: US-WYE-H10116609

PATIENT
  Age: 69 Year
  Sex: Male
  Weight: 89.44 kg

DRUGS (5)
  1. PRISTIQ [Suspect]
     Indication: DEPRESSION
     Route: 048
     Dates: start: 20090603, end: 20090702
  2. PRISTIQ [Suspect]
     Dosage: ^SPLIT HIS PILL IN HALF^, 25 MG DAILY
     Route: 048
     Dates: start: 20090703
  3. FINASTERIDE [Concomitant]
     Indication: PROSTATOMEGALY
     Dosage: UNKNOWN
  4. METOPROLOL TARTRATE [Concomitant]
     Indication: VASCULAR GRAFT
  5. ASPIRIN [Concomitant]
     Indication: CARDIOVASCULAR EVENT PROPHYLAXIS

REACTIONS (4)
  - DECREASED APPETITE [None]
  - HYPERTENSION [None]
  - THERAPEUTIC RESPONSE UNEXPECTED [None]
  - WEIGHT DECREASED [None]
